FAERS Safety Report 25059030 (Version 3)
Quarter: 2025Q1

REPORT INFORMATION
  Report Type: Spontaneous
  Country: NL (occurrence: NL)
  Receive Date: 20250310
  Receipt Date: 20250331
  Transmission Date: 20250409
  Serious: Yes (Life-Threatening, Hospitalization, Other)
  Sender: CHEPLAPHARM
  Company Number: None

PATIENT
  Age: 64 Year
  Sex: Male
  Weight: 120 kg

DRUGS (5)
  1. OLANZAPINE PAMOATE [Suspect]
     Active Substance: OLANZAPINE PAMOATE
     Indication: Schizophrenia
     Route: 030
  2. OLANZAPINE PAMOATE [Suspect]
     Active Substance: OLANZAPINE PAMOATE
     Indication: Schizophrenia
     Route: 030
  3. OLANZAPINE PAMOATE [Suspect]
     Active Substance: OLANZAPINE PAMOATE
     Indication: Schizophrenia
     Route: 048
  4. MIDAZOLAM [Suspect]
     Active Substance: MIDAZOLAM
     Indication: Delirium
  5. MIDAZOLAM [Suspect]
     Active Substance: MIDAZOLAM
     Indication: Delirium

REACTIONS (8)
  - Toxicity to various agents [Recovered/Resolved]
  - Post-injection delirium sedation syndrome [Recovered/Resolved]
  - Electrocardiogram QT prolonged [Recovered/Resolved]
  - Hypertension [Recovered/Resolved]
  - Muscle rigidity [Recovered/Resolved]
  - Overdose [Recovered/Resolved]
  - Off label use [Unknown]
  - Off label use [Unknown]
